FAERS Safety Report 7047383 (Version 5)
Quarter: 2014Q1

REPORT INFORMATION
  Report Type: Report from Study
  Country: FR (occurrence: FR)
  Receive Date: 20090710
  Receipt Date: 20140225
  Transmission Date: 20141002
  Serious: Yes (Hospitalization)
  Sender: FDA-Public Use
  Company Number: FR-ROCHE-642189

PATIENT
  Age: 45 Year
  Sex: Male

DRUGS (4)
  1. MYCOPHENOLATE MOFETIL [Suspect]
     Indication: RENAL TRANSPLANT
     Route: 065
  2. BELATACEPT [Suspect]
     Indication: RENAL TRANSPLANT
     Route: 042
  3. CORTANCYL [Suspect]
     Indication: RENAL TRANSPLANT
     Dosage: DRUG: PREDNISONE ACETATE
     Route: 065
  4. INEXIUM [Concomitant]
     Route: 065

REACTIONS (3)
  - Renal failure acute [Recovered/Resolved with Sequelae]
  - General physical health deterioration [Not Recovered/Not Resolved]
  - Pyrexia [Recovered/Resolved]
